FAERS Safety Report 6655464-X (Version None)
Quarter: 2010Q1

REPORT INFORMATION
  Report Type: 
  Country: None (occurrence: None)
  Receive Date: 20100329
  Receipt Date: 20100316
  Transmission Date: 20100710
  Serious: Yes (Hospitalization)
  Sender: FDA-Public Use
  Company Number: US-PFIZER INC-2010036439

PATIENT
  Sex: Female
  Weight: 63.492 kg

DRUGS (2)
  1. GEODON [Suspect]
     Indication: BIPOLAR DISORDER
     Dosage: 80 MG, 1X/DAY
     Dates: start: 20100101, end: 20100101
  2. ADDERALL XR 10 [Concomitant]
     Dosage: UNK

REACTIONS (3)
  - CHEST PAIN [None]
  - FATIGUE [None]
  - PULMONARY EMBOLISM [None]
